FAERS Safety Report 18716698 (Version 1)
Quarter: 2021Q1

REPORT INFORMATION
  Report Type: Spontaneous
  Country: US (occurrence: US)
  Receive Date: 20210107
  Receipt Date: 20210107
  Transmission Date: 20210419
  Serious: No
  Sender: FDA-Public Use
  Company Number: None

PATIENT
  Age: 57 Year
  Sex: Male

DRUGS (2)
  1. MINOXIDIL (MINOXIDIL 2.5MG TAB) [Suspect]
     Active Substance: MINOXIDIL
     Indication: HYPERTENSION
     Route: 048
     Dates: start: 20190816
  2. HYDRALAZINE (HYDRALAZINE HCL 50MG TAB) [Suspect]
     Active Substance: HYDRALAZINE HYDROCHLORIDE
     Indication: HYPERTENSION
     Route: 048
     Dates: start: 20190529, end: 20191126

REACTIONS (3)
  - Lupus-like syndrome [None]
  - Pericarditis [None]
  - Ascites [None]

NARRATIVE: CASE EVENT DATE: 20191124
